FAERS Safety Report 8033128-8 (Version None)
Quarter: 2012Q1

REPORT INFORMATION
  Report Type: 
  Country: None (occurrence: None)
  Receive Date: 20120110
  Receipt Date: 20101109
  Transmission Date: 20120608
  Serious: Yes (Hospitalization)
  Sender: FDA-Public Use
  Company Number: TW-NOVOPROD-316804

PATIENT

DRUGS (3)
  1. CEPHALEXIN [Concomitant]
     Indication: URINARY TRACT INFECTION
     Dosage: 2000 MG, UNK
     Dates: start: 20100924
  2. TINTEN [Concomitant]
     Indication: URINARY TRACT INFECTION
     Dosage: 2000 MG, QID
     Dates: start: 20100924
  3. INSULIN DETEMIR FLEXPEN [Suspect]
     Indication: TYPE 2 DIABETES MELLITUS
     Dosage: 28 IU, QD
     Route: 058
     Dates: start: 20100427

REACTIONS (1)
  - BLADDER TRANSITIONAL CELL CARCINOMA RECURRENT [None]
